FAERS Safety Report 13968999 (Version 1)
Quarter: 2017Q3

REPORT INFORMATION
  Report Type: Report from Study
  Country: US (occurrence: US)
  Receive Date: 20170914
  Receipt Date: 20170914
  Transmission Date: 20171128
  Serious: No
  Sender: FDA-Public Use
  Company Number: PHEH2017US029108

PATIENT
  Sex: Female

DRUGS (1)
  1. COSENTYX [Suspect]
     Active Substance: SECUKINUMAB
     Indication: PSORIATIC ARTHROPATHY
     Dosage: 150 MG, QMO
     Route: 058

REACTIONS (6)
  - Balance disorder [Unknown]
  - Psoriatic arthropathy [Recovering/Resolving]
  - Cerebral disorder [Unknown]
  - Gait disturbance [Unknown]
  - Arthralgia [Unknown]
  - Confusional state [Unknown]
